FAERS Safety Report 7798049 (Version 7)
Quarter: 2012Q4

REPORT INFORMATION
  Report Type: 
  Country: JP (occurrence: JP)
  Receive Date: 20110203
  Receipt Date: 20121228
  Transmission Date: 20130627
  Serious: Yes (Life-Threatening, Hospitalization)
  Sender: FDA-Public Use
  Company Number: JP-B.I. PHARMACEUTICALS,INC./RIDGEFIELD-2011-DE-00746GD

PATIENT
  Sex: Male

DRUGS (4)
  1. MOBIC [Suspect]
     Indication: BACK PAIN
     Dosage: 10 mg
     Route: 048
     Dates: start: 2000
  2. BUP-4 [Concomitant]
  3. PANTOSIN [Concomitant]
  4. MAGNESIUM OXIDE [Concomitant]

REACTIONS (4)
  - Intestinal stenosis [Not Recovered/Not Resolved]
  - Haematochezia [Not Recovered/Not Resolved]
  - Anaemia [Not Recovered/Not Resolved]
  - Bladder cancer [Not Recovered/Not Resolved]
